FAERS Safety Report 23781594 (Version 1)
Quarter: 2024Q2

REPORT INFORMATION
  Report Type: Spontaneous
  Country: US (occurrence: US)
  Receive Date: 20240425
  Receipt Date: 20240425
  Transmission Date: 20240717
  Serious: No
  Sender: FDA-Public Use
  Company Number: US-BoehringerIngelheim-2024-BI-024123

PATIENT
  Age: 77 Year
  Sex: Female

DRUGS (1)
  1. ATROVENT HFA [Suspect]
     Active Substance: IPRATROPIUM BROMIDE
     Indication: Asthma
     Dosage: INHALATION AEROSOL, 2 PUFFS EVERY 6 HOURS

REACTIONS (2)
  - Cough [Unknown]
  - Drug ineffective [Unknown]
